FAERS Safety Report 10998487 (Version 2)
Quarter: 2019Q1

REPORT INFORMATION
  Report Type: Spontaneous
  Country: US (occurrence: US)
  Receive Date: 20150408
  Receipt Date: 20190121
  Transmission Date: 20190417
  Serious: No
  Sender: FDA-Public Use
  Company Number: US-SA-2014SA039243

PATIENT
  Age: 67 Year
  Sex: Female

DRUGS (1)
  1. ALLEGRA [Suspect]
     Active Substance: FEXOFENADINE HYDROCHLORIDE
     Indication: HYPERSENSITIVITY
     Dosage: AT 8:39-AM TODAY AND WOULD LIKE TO TAKE ANOTHER TONIGHT AT 9-PM
     Route: 048

REACTIONS (1)
  - Wrong technique in product usage process [Unknown]
